FAERS Safety Report 6477613-9 (Version None)
Quarter: 2009Q4

REPORT INFORMATION
  Report Type: 
  Country: None (occurrence: None)
  Receive Date: 20091203
  Receipt Date: 20091203
  Transmission Date: 20100525
  Serious: Yes (Other)
  Sender: FDA-Public Use
  Company Number: None

PATIENT
  Sex: Male
  Weight: 35.3806 kg

DRUGS (6)
  1. LENALIDOMIDE -REVLIMID- 2.5 MG CELGENE [Suspect]
     Indication: AUTISM
     Dosage: 2.5 MG DAILY PO
     Route: 048
     Dates: start: 20090415, end: 20090706
  2. ARICEPT [Concomitant]
  3. NAMENDA [Concomitant]
  4. VALPROATE SODIUM [Concomitant]
  5. PREVACID [Concomitant]
  6. OMNICEF [Concomitant]

REACTIONS (2)
  - NEUTROPHIL COUNT DECREASED [None]
  - PHARYNGITIS STREPTOCOCCAL [None]
